FAERS Safety Report 7008817-4 (Version None)
Quarter: 2010Q3

REPORT INFORMATION
  Report Type: 
  Country: None (occurrence: None)
  Receive Date: 20100922
  Receipt Date: 20100908
  Transmission Date: 20110219
  Serious: Yes (Other)
  Sender: FDA-Public Use
  Company Number: GB-MYLANLABS-2010S1016478

PATIENT
  Sex: Male

DRUGS (6)
  1. PERGOLIDE [Suspect]
     Indication: PARKINSON'S DISEASE
     Dosage: UP TO 4.5 MG/DAY
     Route: 065
  2. LEVODOPA [Suspect]
     Indication: PARKINSON'S DISEASE
     Route: 065
  3. LEVODOPA [Suspect]
     Dosage: UP TO 1000 MG/DAY
     Route: 065
  4. AMANTADINE [Suspect]
     Indication: PARKINSON'S DISEASE
     Route: 065
  5. ROPINIROLE [Suspect]
     Indication: PARKINSON'S DISEASE
     Route: 065
  6. ENTACAPONE [Concomitant]
     Indication: PARKINSON'S DISEASE
     Route: 065

REACTIONS (2)
  - DOPAMINE DYSREGULATION SYNDROME [None]
  - ON AND OFF PHENOMENON [None]
